FAERS Safety Report 10558991 (Version 3)
Quarter: 2014Q4

REPORT INFORMATION
  Report Type: Spontaneous
  Country: US (occurrence: US)
  Receive Date: 20141103
  Receipt Date: 20141215
  Transmission Date: 20150529
  Serious: Yes (Hospitalization, Other)
  Sender: FDA-Public Use
  Company Number: PHHY2014US139831

PATIENT
  Age: 10 Year
  Sex: Male

DRUGS (8)
  1. BACLOFEN. [Suspect]
     Active Substance: BACLOFEN
     Indication: MUSCLE SPASTICITY
     Route: 048
  2. ALBUTEROL SULFATE TABLETS USP [Suspect]
     Active Substance: ALBUTEROL SULFATE
     Indication: PRODUCT USED FOR UNKNOWN INDICATION
     Route: 065
  3. CELEXA [Suspect]
     Active Substance: CITALOPRAM HYDROBROMIDE
     Indication: PRODUCT USED FOR UNKNOWN INDICATION
     Route: 065
  4. LIORESAL [Suspect]
     Active Substance: BACLOFEN
     Dosage: 228.1 UG, QD (INCREASED BY 20%)
     Route: 037
     Dates: start: 20140915
  5. HYDRALAZINE [Suspect]
     Active Substance: HYDRALAZINE HYDROCHLORIDE
     Indication: PRODUCT USED FOR UNKNOWN INDICATION
     Route: 065
  6. LIORESAL [Suspect]
     Active Substance: BACLOFEN
     Indication: MUSCLE SPASTICITY
     Dosage: 190.4 UG, QD
     Route: 037
  7. IBUPROFEN. [Suspect]
     Active Substance: IBUPROFEN
     Indication: PRODUCT USED FOR UNKNOWN INDICATION
     Route: 065
  8. MELATONIN [Suspect]
     Active Substance: MELATONIN
     Indication: PRODUCT USED FOR UNKNOWN INDICATION
     Route: 065

REACTIONS (12)
  - Pyrexia [Unknown]
  - Implant site infection [Unknown]
  - Implant site swelling [Unknown]
  - Muscle spasms [Unknown]
  - Muscle spasticity [Unknown]
  - Drug withdrawal syndrome [Unknown]
  - Pruritus [Unknown]
  - Implant site extravasation [Unknown]
  - Irritability [Unknown]
  - Purulent discharge [Unknown]
  - Hypertonia [Unknown]
  - Nausea [Unknown]

NARRATIVE: CASE EVENT DATE: 20140829
